FAERS Safety Report 5175201-8 (Version None)
Quarter: 2006Q4

REPORT INFORMATION
  Report Type: 
  Country: None (occurrence: None)
  Receive Date: 20061206
  Receipt Date: 20061123
  Transmission Date: 20070319
  Serious: Yes (Hospitalization)
  Sender: FDA-Public Use
  Company Number: MEDI-0005161

PATIENT
  Age: 30 Month

DRUGS (4)
  1. SYNAGIS [Suspect]
     Indication: ANTIVIRAL PROPHYLAXIS
     Dosage: SEE IMAGE, INTRAMUSCULAR
     Dates: start: 20051104, end: 20060208
  2. SYNAGIS [Suspect]
     Indication: ANTIVIRAL PROPHYLAXIS
     Dosage: SEE IMAGE, INTRAMUSCULAR
     Dates: start: 20051104
  3. SYNAGIS [Suspect]
     Indication: ANTIVIRAL PROPHYLAXIS
     Dosage: SEE IMAGE, INTRAMUSCULAR
     Dates: start: 20051214
  4. SYNAGIS [Suspect]
     Indication: ANTIVIRAL PROPHYLAXIS
     Dosage: SEE IMAGE, INTRAMUSCULAR
     Dates: start: 20060110

REACTIONS (2)
  - ASTHMATIC CRISIS [None]
  - PO2 DECREASED [None]
